FAERS Safety Report 4455886-1 (Version None)
Quarter: 2004Q3

REPORT INFORMATION
  Report Type: 
  Country: None (occurrence: None)
  Receive Date: 20040922
  Receipt Date: 20040913
  Transmission Date: 20050211
  Serious: Yes (Hospitalization, Other)
  Sender: FDA-Public Use
  Company Number: US-MERCK-0409USA01147

PATIENT
  Age: 70 Year
  Sex: Female

DRUGS (3)
  1. VIOXX [Suspect]
     Indication: ARTHRITIS
     Route: 048
     Dates: start: 20040101
  2. VIOXX [Suspect]
     Route: 048
     Dates: start: 20020101
  3. FORTEO [Concomitant]
     Route: 065

REACTIONS (4)
  - DYSPNOEA [None]
  - LUNG DISORDER [None]
  - MYOCARDIAL INFARCTION [None]
  - UNEVALUABLE EVENT [None]
